FAERS Safety Report 24296198 (Version 1)
Quarter: 2024Q3

REPORT INFORMATION
  Report Type: Spontaneous
  Country: US (occurrence: US)
  Receive Date: 20240909
  Receipt Date: 20240909
  Transmission Date: 20241017
  Serious: Yes (Other)
  Sender: ORGANON
  Company Number: US-ORGANON-O2409USA000438

PATIENT
  Sex: Female

DRUGS (4)
  1. PREGNYL [Suspect]
     Active Substance: CHORIOGONADOTROPIN ALFA
     Indication: Infertility female
     Dosage: 10,000 UNIT MDV60, DOSE AS DIRECTED IN THE  MUSCLE FOR 1 TIME DOSE
     Route: 030
     Dates: start: 20231017
  2. LETROZOLE [Concomitant]
     Active Substance: LETROZOLE
     Dosage: 2.5 MILLIGRAM
  3. LEVOTHYROXINE [Concomitant]
     Active Substance: LEVOTHYROXINE\LEVOTHYROXINE SODIUM
     Dosage: 50 MICROGRAM
  4. PRENATAL [FERROUS SULFATE;FOLIC ACID;ZINC] [Concomitant]
     Dosage: UNK

REACTIONS (3)
  - Abortion spontaneous [Recovered/Resolved]
  - Biochemical pregnancy [Recovered/Resolved]
  - Maternal exposure during pregnancy [Unknown]
